FAERS Safety Report 7415732-0 (Version None)
Quarter: 2011Q2

REPORT INFORMATION
  Report Type: 
  Country: None (occurrence: None)
  Receive Date: 20110414
  Receipt Date: 20110126
  Transmission Date: 20111010
  Serious: No
  Sender: FDA-Public Use
  Company Number: US-BRISTOL-MYERS SQUIBB COMPANY-15514292

PATIENT
  Age: 79 Year
  Sex: Female
  Weight: 57 kg

DRUGS (4)
  1. OXYBUTYNIN CHLORIDE [Suspect]
     Indication: URINARY INCONTINENCE
     Dosage: 1 DF: 1 SACHET
     Route: 061
     Dates: start: 20101230
  2. HYDREA [Suspect]
     Indication: PLATELET COUNT INCREASED
     Dosage: 1 DF: 2 TAB DAILY FROM JAN2001-09JAN11.AND DECRESED TO 1 TAB DAILY FROM 10JAN11-ONG
     Route: 048
     Dates: start: 20010101
  3. FENOFIBRATE [Concomitant]
  4. TRICOR [Concomitant]

REACTIONS (2)
  - OEDEMA PERIPHERAL [None]
  - PLATELET COUNT DECREASED [None]
